FAERS Safety Report 5714109-3 (Version None)
Quarter: 2008Q2

REPORT INFORMATION
  Report Type: 
  Country: None (occurrence: None)
  Receive Date: 20080422
  Receipt Date: 20080422
  Transmission Date: 20081010
  Serious: Yes (Other)
  Sender: FDA-Public Use
  Company Number: None

PATIENT
  Age: 60 Year
  Sex: Female
  Weight: 63.5036 kg

DRUGS (2)
  1. ARMOUR THYROID  90MG  FOREST [Suspect]
     Indication: THYROIDECTOMY
     Dosage: ONE DAILY PO
     Route: 048
     Dates: start: 20071001, end: 20080103
  2. ARMOUR THYROID  90MG  FOREST [Suspect]
     Indication: THYROIDECTOMY
     Dosage: ONE DAILY PO
     Route: 048
     Dates: start: 20080416, end: 20080416

REACTIONS (11)
  - CHILLS [None]
  - FEELING HOT [None]
  - HYPERSENSITIVITY [None]
  - OEDEMA PERIPHERAL [None]
  - PAIN [None]
  - PARAESTHESIA [None]
  - PARAESTHESIA ORAL [None]
  - PHARMACEUTICAL PRODUCT COMPLAINT [None]
  - PRURITUS GENERALISED [None]
  - RASH GENERALISED [None]
  - URTICARIA [None]
